FAERS Safety Report 24299733 (Version 1)
Quarter: 2024Q3

REPORT INFORMATION
  Report Type: Report from Study
  Country: BR (occurrence: None)
  Receive Date: 20240909
  Receipt Date: 20240909
  Transmission Date: 20241017
  Serious: Yes (Life-Threatening, Hospitalization, Other)
  Sender: ASTRAZENECA
  Company Number: 2024A176334

PATIENT
  Age: 786 Month
  Sex: Female
  Weight: 77 kg

DRUGS (8)
  1. FASENRA [Suspect]
     Active Substance: BENRALIZUMAB
     Indication: Asthma
     Dosage: 30MG/ML
     Route: 058
     Dates: start: 202301
  2. SYMBICORT [Suspect]
     Active Substance: BUDESONIDE\FORMOTEROL FUMARATE DIHYDRATE
     Indication: Pneumonia
     Dosage: TWO PUFFS
     Route: 055
     Dates: start: 202408
  3. FASENRA [Suspect]
     Active Substance: BENRALIZUMAB
     Indication: Asthma
     Route: 058
  4. ROSUVASTATIN [Suspect]
     Active Substance: ROSUVASTATIN\ROSUVASTATIN CALCIUM
     Indication: Carotid artery disease
     Dosage: ONE TABLET
     Route: 048
  5. ALENIA [Concomitant]
     Indication: Asthma
     Route: 048
     Dates: start: 201401
  6. MONTELUKAST SODIUM [Concomitant]
     Active Substance: MONTELUKAST\MONTELUKAST SODIUM
     Indication: Asthma
     Route: 048
     Dates: start: 201401
  7. MONTELUKAST SODIUM [Concomitant]
     Active Substance: MONTELUKAST\MONTELUKAST SODIUM
     Indication: Asthma
     Route: 048
     Dates: start: 201401
  8. ALBUTEROL [Concomitant]
     Active Substance: ALBUTEROL
     Indication: Asthma
     Route: 048
     Dates: start: 201401

REACTIONS (14)
  - Asthmatic crisis [Unknown]
  - COVID-19 [Recovered/Resolved]
  - Pneumonia [Unknown]
  - Memory impairment [Unknown]
  - Blood glucose increased [Unknown]
  - Memory impairment [Unknown]
  - Oxygen saturation decreased [Recovered/Resolved]
  - Heart rate increased [Recovered/Resolved]
  - Fatigue [Recovering/Resolving]
  - Weight increased [Unknown]
  - Off label use [Unknown]
  - Stress [Unknown]
  - Medication error [Unknown]
  - Body height decreased [Unknown]

NARRATIVE: CASE EVENT DATE: 20230901
